FAERS Safety Report 9501422 (Version 1)
Quarter: 2013Q3

REPORT INFORMATION
  Report Type: Spontaneous
  Country: CA (occurrence: CA)
  Receive Date: 20130905
  Receipt Date: 20130905
  Transmission Date: 20140515
  Serious: Yes (Other)
  Sender: FDA-Public Use
  Company Number: CA-GLAXOSMITHKLINE-A1039206A

PATIENT
  Age: 31 Year
  Sex: Male

DRUGS (3)
  1. AVAMYS [Suspect]
     Indication: NASAL CONGESTION
     Dosage: 2SPR PER DAY
     Route: 065
     Dates: start: 20130804, end: 20130818
  2. FLOVENT [Concomitant]
  3. VENTOLIN [Concomitant]

REACTIONS (3)
  - Pharyngeal oedema [Recovered/Resolved]
  - Throat tightness [Recovered/Resolved]
  - Dyspnoea [Recovered/Resolved]
